FAERS Safety Report 23289899 (Version 3)
Quarter: 2024Q2

REPORT INFORMATION
  Report Type: Spontaneous
  Country: JP (occurrence: JP)
  Receive Date: 20231212
  Receipt Date: 20240509
  Transmission Date: 20240716
  Serious: Yes (Hospitalization)
  Sender: FDA-Public Use
  Company Number: JP-002147023-NVSJ2023JP017347

PATIENT
  Age: 60 Year
  Sex: Male

DRUGS (1)
  1. ENTRESTO [Suspect]
     Active Substance: SACUBITRIL\VALSARTAN
     Indication: Hypertension
     Dosage: 200 MG
     Route: 048
     Dates: start: 20231028, end: 20231124

REACTIONS (8)
  - Angioedema [Unknown]
  - Swelling [Unknown]
  - Dysphonia [Unknown]
  - Dysphagia [Unknown]
  - Oral neoplasm [Unknown]
  - Pyrexia [Unknown]
  - Anaemia [Unknown]
  - Platelet count decreased [Unknown]
